FAERS Safety Report 14487862 (Version 1)
Quarter: 2018Q1

REPORT INFORMATION
  Report Type: Report from Study
  Country: IE (occurrence: IE)
  Receive Date: 20180205
  Receipt Date: 20180205
  Transmission Date: 20180509
  Serious: Yes (Hospitalization, Other)
  Sender: FDA-Public Use
  Company Number: US-ASTRAZENECA-2018SE02955

PATIENT
  Age: 3 Month
  Sex: Female

DRUGS (3)
  1. VITAMIN D [Concomitant]
     Active Substance: CHOLECALCIFEROL
     Indication: PRODUCT USED FOR UNKNOWN INDICATION
     Route: 048
  2. SYNAGIS [Suspect]
     Active Substance: PALIVIZUMAB
     Indication: PREMATURE BABY
     Dosage: 15 MG/KG (ON 06-OCT-2017), 15 MG/KG (03-NOV-2017), 15 MG/KG, (ON 01-DEC-2017), 15 MG/KG, MONTHLY ...
     Route: 030
     Dates: start: 20171006
  3. IRON [Concomitant]
     Active Substance: IRON
     Indication: PRODUCT USED FOR UNKNOWN INDICATION
     Route: 048

REACTIONS (7)
  - Rhinitis [Recovered/Resolved]
  - Bronchiolitis [Recovered/Resolved]
  - Atrial septal defect [Not Recovered/Not Resolved]
  - Pharyngeal erythema [Recovered/Resolved]
  - Viral infection [Recovered/Resolved]
  - Purulent discharge [Recovered/Resolved]
  - Cough [Recovered/Resolved]

NARRATIVE: CASE EVENT DATE: 201712
